FAERS Safety Report 7980053-4 (Version None)
Quarter: 2011Q4

REPORT INFORMATION
  Report Type: 
  Country: None (occurrence: None)
  Receive Date: 20111214
  Receipt Date: 20111209
  Transmission Date: 20120403
  Serious: Yes (Other)
  Sender: FDA-Public Use
  Company Number: GB-ROCHE-1017942

PATIENT
  Sex: Female

DRUGS (1)
  1. ISOTRETINOIN [Suspect]
     Indication: PRODUCT USED FOR UNKNOWN INDICATION
     Route: 065
     Dates: start: 20100401

REACTIONS (8)
  - MADAROSIS [None]
  - APATHY [None]
  - MALAISE [None]
  - HEADACHE [None]
  - ALOPECIA [None]
  - DEPRESSED MOOD [None]
  - ABDOMINAL PAIN UPPER [None]
  - PALLOR [None]
